FAERS Safety Report 6834143-X (Version None)
Quarter: 2010Q3

REPORT INFORMATION
  Report Type: 
  Country: None (occurrence: None)
  Receive Date: 20100712
  Receipt Date: 20070416
  Transmission Date: 20110219
  Serious: No
  Sender: FDA-Public Use
  Company Number: US-PFIZER INC-2007031288

PATIENT
  Sex: Female
  Weight: 58.06 kg

DRUGS (4)
  1. CHANTIX [Suspect]
     Indication: SMOKING CESSATION THERAPY
     Dates: start: 20070410
  2. PREMARIN [Concomitant]
  3. ALLEGRA [Concomitant]
  4. VITAMINS [Concomitant]

REACTIONS (2)
  - HEADACHE [None]
  - MOOD SWINGS [None]
